FAERS Safety Report 17241359 (Version 1)
Quarter: 2020Q1

REPORT INFORMATION
  Report Type: Spontaneous
  Country: US (occurrence: US)
  Receive Date: 20200106
  Receipt Date: 20200106
  Transmission Date: 20200409
  Serious: Yes (Hospitalization)
  Sender: FDA-Public Use
  Company Number: None

PATIENT
  Age: 53 Year
  Sex: Female

DRUGS (8)
  1. ENBREL [Suspect]
     Active Substance: ETANERCEPT
     Indication: RHEUMATOID ARTHRITIS
     Dosage: ?          OTHER FREQUENCY:QW;?
     Route: 058
     Dates: start: 20160902
  2. AZULFIDINE [Concomitant]
     Active Substance: SULFASALAZINE
  3. FOLIC ACID. [Concomitant]
     Active Substance: FOLIC ACID
  4. PLAQUENIL [Concomitant]
     Active Substance: HYDROXYCHLOROQUINE SULFATE
  5. METHOTREXATE. [Concomitant]
     Active Substance: METHOTREXATE
  6. ASPIRIN. [Concomitant]
     Active Substance: ASPIRIN
  7. ZYRTEC [Concomitant]
     Active Substance: CETIRIZINE HYDROCHLORIDE
  8. ETODOLAC. [Concomitant]
     Active Substance: ETODOLAC

REACTIONS (3)
  - Condition aggravated [None]
  - Therapy cessation [None]
  - Surgery [None]

NARRATIVE: CASE EVENT DATE: 20200103
